FAERS Safety Report 8812125 (Version 2)
Quarter: 2015Q2

REPORT INFORMATION
  Report Type: Report from Study
  Country: US (occurrence: US)
  Receive Date: 20120927
  Receipt Date: 20150401
  Transmission Date: 20150821
  Serious: Yes (Death, Hospitalization, Other)
  Sender: FDA-Public Use
  Company Number: US-ROCHE-1128533

PATIENT
  Age: 48 Year
  Sex: Male

DRUGS (28)
  1. DECADRON [Concomitant]
     Active Substance: DEXAMETHASONE
     Route: 065
  2. ALOXI [Concomitant]
     Active Substance: PALONOSETRON HYDROCHLORIDE
     Route: 065
  3. BENADRYL [Concomitant]
     Active Substance: DIPHENHYDRAMINE HYDROCHLORIDE
     Route: 042
  4. KEPPRA [Concomitant]
     Active Substance: LEVETIRACETAM
  5. IFOSFAMIDE. [Concomitant]
     Active Substance: IFOSFAMIDE
     Route: 065
     Dates: end: 20071108
  6. IFOSFAMIDE. [Concomitant]
     Active Substance: IFOSFAMIDE
  7. ZOFRAN [Concomitant]
     Active Substance: ONDANSETRON HYDROCHLORIDE
     Indication: NAUSEA
     Dosage: PM
     Route: 065
  8. ZANTAC [Concomitant]
     Active Substance: RANITIDINE HYDROCHLORIDE
     Route: 065
  9. DEXAMETHASONE. [Concomitant]
     Active Substance: DEXAMETHASONE
     Dosage: 1 MG ONCE IN MORNING AND 1 MG ONCE PM.
     Route: 048
  10. TEMODAR [Concomitant]
     Active Substance: TEMOZOLOMIDE
     Route: 065
     Dates: start: 20071018
  11. BACTRIM DS [Concomitant]
     Active Substance: SULFAMETHOXAZOLE\TRIMETHOPRIM
     Dosage: 1 TABLET
     Route: 048
  12. TAXOL [Concomitant]
     Active Substance: PACLITAXEL
     Route: 042
  13. DOXIL [Concomitant]
     Active Substance: DOXORUBICIN HYDROCHLORIDE
     Route: 042
  14. SESAME OIL [Concomitant]
     Active Substance: SESAME OIL
     Dosage: DOSE: 2 TBSP
     Route: 061
  15. COMPAZINE [Concomitant]
     Active Substance: PROCHLORPERAZINE MALEATE
     Indication: NAUSEA
     Dosage: PM
     Route: 065
  16. AVASTIN [Suspect]
     Active Substance: BEVACIZUMAB
     Indication: BRAIN NEOPLASM MALIGNANT
     Route: 042
  17. MESNA. [Concomitant]
     Active Substance: MESNA
  18. CARBOPLATIN. [Concomitant]
     Active Substance: CARBOPLATIN
  19. DEXAMETHASONE. [Concomitant]
     Active Substance: DEXAMETHASONE
     Route: 048
  20. AVASTIN [Suspect]
     Active Substance: BEVACIZUMAB
     Indication: BRAIN NEOPLASM MALIGNANT
     Route: 042
     Dates: start: 200701
  21. ETOPOSIDE. [Concomitant]
     Active Substance: ETOPOSIDE
  22. SEPTRA [Concomitant]
     Active Substance: SULFAMETHOXAZOLE\TRIMETHOPRIM
  23. TEMODAR [Concomitant]
     Active Substance: TEMOZOLOMIDE
     Route: 065
     Dates: start: 20070727
  24. CPT-11 [Concomitant]
     Active Substance: IRINOTECAN
     Route: 065
     Dates: start: 200701
  25. PROCRIT [Concomitant]
     Active Substance: ERYTHROPOIETIN
     Route: 065
  26. ETOPOSIDE. [Concomitant]
     Active Substance: ETOPOSIDE
     Route: 042
  27. NEUPOGEN [Concomitant]
     Active Substance: FILGRASTIM
     Route: 058
  28. DEXAMETHASONE. [Concomitant]
     Active Substance: DEXAMETHASONE
     Route: 048

REACTIONS (7)
  - Thrombocytopenia [Unknown]
  - Diarrhoea [Recovered/Resolved]
  - Peripheral swelling [Unknown]
  - Disease progression [Unknown]
  - Death [Fatal]
  - Deep vein thrombosis [Unknown]
  - Pneumocystis jirovecii pneumonia [Recovering/Resolving]

NARRATIVE: CASE EVENT DATE: 200705
